FAERS Safety Report 7503616-9 (Version None)
Quarter: 2011Q2

REPORT INFORMATION
  Report Type: 
  Country: None (occurrence: None)
  Receive Date: 20110524
  Receipt Date: 20110524
  Transmission Date: 20111010
  Serious: Yes (Other)
  Sender: FDA-Public Use
  Company Number: None

PATIENT
  Sex: Female
  Weight: 64.8644 kg

DRUGS (1)
  1. ZEGERID OTC [Suspect]
     Indication: MUSCULOSKELETAL PAIN
     Dosage: 1 PILL 1 X A DAY PO
     Route: 048
     Dates: start: 20110508, end: 20110520

REACTIONS (3)
  - MUSCULOSKELETAL PAIN [None]
  - PRODUCT LABEL ISSUE [None]
  - GALLBLADDER DISORDER [None]
